FAERS Safety Report 7014700-0 (Version None)
Quarter: 2010Q3

REPORT INFORMATION
  Report Type: 
  Country: None (occurrence: None)
  Receive Date: 20100927
  Receipt Date: 20100824
  Transmission Date: 20110219
  Serious: Yes (Hospitalization)
  Sender: FDA-Public Use
  Company Number: PHHY2010JP41710

PATIENT
  Sex: Male
  Weight: 57 kg

DRUGS (13)
  1. DIOVAN [Suspect]
     Indication: HYPERTENSION
     Dosage: 80 MG, QD
     Route: 048
     Dates: start: 20071206, end: 20081202
  2. NU-LOTAN [Concomitant]
     Indication: HYPERTENSION
     Dosage: 50 MG
     Route: 048
     Dates: start: 20071114, end: 20071205
  3. HALCION [Concomitant]
     Dosage: 0.25 MG
     Route: 048
     Dates: start: 20051012
  4. LORAZEPAM [Concomitant]
     Dosage: 0.5 MG
     Route: 048
     Dates: start: 20071206, end: 20080210
  5. DEPAS [Concomitant]
     Dosage: 3 MG
     Route: 048
     Dates: start: 20070901
  6. LAC B [Concomitant]
     Dosage: 3.0 G
     Route: 048
     Dates: start: 20051012
  7. GASCON [Concomitant]
     Dosage: 120 MG
     Route: 048
     Dates: start: 20051012
  8. TOUGHMAC E [Concomitant]
     Dosage: 3 DF
     Route: 048
     Dates: start: 20051012
  9. LEUPLIN [Concomitant]
     Dosage: 3.75 MG
     Route: 058
     Dates: start: 20070628, end: 20080424
  10. TAMSULOSIN HYDROCHLORIDE [Concomitant]
     Dosage: 0.2 MG
     Route: 048
     Dates: start: 20000107
  11. METHYCOBAL [Concomitant]
     Dosage: 1500 MG
     Route: 048
     Dates: start: 20051012
  12. CASODEX [Concomitant]
     Dosage: 80 MG
     Route: 048
     Dates: start: 20080510
  13. THYRADIN S [Concomitant]
     Dosage: 25 MG
     Route: 048
     Dates: start: 20081202

REACTIONS (2)
  - CARDIOVASCULAR DISORDER [None]
  - HYPOTHYROIDISM [None]
